FAERS Safety Report 7522874-8 (Version None)
Quarter: 2011Q2

REPORT INFORMATION
  Report Type: 
  Country: None (occurrence: None)
  Receive Date: 20110603
  Receipt Date: 20110519
  Transmission Date: 20111010
  Serious: Yes (Other)
  Sender: FDA-Public Use
  Company Number: PHHY2011CA43640

PATIENT
  Sex: Female

DRUGS (2)
  1. ZOLEDRONIC ACID [Suspect]
     Indication: OSTEOPOROSIS
     Dosage: 5 MG
     Route: 042
     Dates: start: 20101101
  2. NAPROXEN (ALEVE) [Concomitant]
     Dosage: 1 TAB

REACTIONS (7)
  - HYPOAESTHESIA [None]
  - FEELING COLD [None]
  - SKIN DISCOLOURATION [None]
  - OEDEMA PERIPHERAL [None]
  - ERYTHEMA [None]
  - PARAESTHESIA [None]
  - SPINAL FRACTURE [None]
